FAERS Safety Report 9630659 (Version 1)
Quarter: 2013Q4

REPORT INFORMATION
  Report Type: Spontaneous
  Country: US (occurrence: None)
  Receive Date: 20131016
  Receipt Date: 20131016
  Transmission Date: 20140711
  Serious: Yes (Congenital Anomaly)
  Sender: FDA-Public Use
  Company Number: None

PATIENT
  Age: 0 Day
  Sex: Female
  Weight: 16 kg

DRUGS (1)
  1. LAMICTAL [Suspect]
     Indication: EXPOSURE DURING PREGNANCY

REACTIONS (4)
  - Maternal drugs affecting foetus [None]
  - Microcephaly [None]
  - Limb reduction defect [None]
  - Developmental delay [None]
